FAERS Safety Report 12388302 (Version 2)
Quarter: 2016Q2

REPORT INFORMATION
  Report Type: Spontaneous
  Country: JP (occurrence: JP)
  Receive Date: 20160520
  Receipt Date: 20160531
  Transmission Date: 20160815
  Serious: Yes (Hospitalization)
  Sender: FDA-Public Use
  Company Number: PHJP2016JP012748

PATIENT
  Sex: Male

DRUGS (1)
  1. TEGRETOL [Suspect]
     Active Substance: CARBAMAZEPINE
     Indication: EPILEPSY
     Dosage: 600 MG, QD (MORNING AT 200 MG, AROUND NOON AT 100 MG, EVENING AT 100MG, BEDTIME AT 200 MG)
     Route: 048

REACTIONS (2)
  - Myocardial ischaemia [Unknown]
  - Concomitant disease aggravated [Unknown]
